FAERS Safety Report 12526809 (Version 1)
Quarter: 2016Q3

REPORT INFORMATION
  Report Type: Spontaneous
  Country: US (occurrence: US)
  Receive Date: 20160705
  Receipt Date: 20160705
  Transmission Date: 20161109
  Serious: Yes (Hospitalization)
  Sender: FDA-Public Use
  Company Number: US-BAYER-2016-125168

PATIENT
  Age: 30 Year
  Sex: Female
  Weight: 55.78 kg

DRUGS (1)
  1. MIRENA [Suspect]
     Active Substance: LEVONORGESTREL
     Indication: CONTRACEPTION
     Dosage: 20 MCG/24HR, CONT
     Route: 015
     Dates: start: 20120912, end: 20140618

REACTIONS (6)
  - Ruptured ectopic pregnancy [None]
  - Ectopic pregnancy with contraceptive device [None]
  - Depression [None]
  - Uterine perforation [None]
  - Drug ineffective [None]
  - Anxiety [None]

NARRATIVE: CASE EVENT DATE: 201406
